FAERS Safety Report 15499958 (Version 1)
Quarter: 2018Q4

REPORT INFORMATION
  Report Type: Report from Study
  Country: JP (occurrence: JP)
  Receive Date: 20181015
  Receipt Date: 20181015
  Transmission Date: 20190205
  Serious: Yes (Hospitalization)
  Sender: FDA-Public Use
  Company Number: JP-ACTELION-A-CH2017-165036

PATIENT
  Age: 75 Year
  Sex: Female
  Weight: 69 kg

DRUGS (20)
  1. SPIRONOLACTONE. [Concomitant]
     Active Substance: SPIRONOLACTONE
     Indication: CARDIAC FAILURE
     Dosage: 50 MG, UNK
     Route: 048
  2. UPTRAVI [Suspect]
     Active Substance: SELEXIPAG
     Dosage: 0.8 MG, BID
     Route: 048
     Dates: start: 20170802
  3. FUROSEMIDE. [Concomitant]
     Active Substance: FUROSEMIDE
     Indication: CARDIAC FAILURE
     Dosage: 40 MG, UNK
     Route: 048
  4. LANSOPRAZOLE. [Concomitant]
     Active Substance: LANSOPRAZOLE
     Indication: GASTROOESOPHAGEAL REFLUX DISEASE
     Dosage: 15 MG, UNK
     Route: 048
  5. SENNOSIDE [Concomitant]
     Active Substance: SENNOSIDES
  6. UPTRAVI [Suspect]
     Active Substance: SELEXIPAG
     Dosage: 0.4 MG, BID
     Route: 048
     Dates: start: 20170509, end: 20170729
  7. SUGLAT [Concomitant]
     Active Substance: IPRAGLIFLOZIN L-PROLINE
     Indication: DIABETES MELLITUS
     Dosage: 50 MG, UNK
     Route: 048
  8. OXYGEN. [Concomitant]
     Active Substance: OXYGEN
  9. UPTRAVI [Suspect]
     Active Substance: SELEXIPAG
     Dosage: 0.6 MG, BID
     Route: 048
     Dates: start: 20170730, end: 20170801
  10. URSODEOXYCHOLIC ACID [Concomitant]
     Active Substance: URSODIOL
     Indication: CHOLELITHIASIS
     Dosage: 600 MG, UNK
     Route: 048
  11. ASPARA POTASSIUM [Concomitant]
     Active Substance: POTASSIUM ASPARTATE
     Indication: HYPOKALAEMIA
     Dosage: 900 MG, UNK
     Route: 048
  12. EQUA [Concomitant]
     Active Substance: VILDAGLIPTIN
     Indication: DIABETES MELLITUS
     Dosage: 100 MG, UNK
     Route: 048
  13. LANSOPRAZOLE. [Concomitant]
     Active Substance: LANSOPRAZOLE
  14. UPTRAVI [Suspect]
     Active Substance: SELEXIPAG
     Indication: PORTOPULMONARY HYPERTENSION
     Dosage: 0.2 MG, BID
     Route: 048
     Dates: start: 20170503, end: 20170508
  15. ADEMPAS [Concomitant]
     Active Substance: RIOCIGUAT
     Indication: PULMONARY ARTERIAL HYPERTENSION
     Dosage: 7.5 MG, UNK
     Route: 048
     Dates: start: 20170820
  16. GLIMEPIRIDE. [Concomitant]
     Active Substance: GLIMEPIRIDE
  17. NEXIUM [Concomitant]
     Active Substance: ESOMEPRAZOLE MAGNESIUM
  18. ADCIRCA [Concomitant]
     Active Substance: TADALAFIL
  19. OPSUMIT [Suspect]
     Active Substance: MACITENTAN
     Indication: PORTOPULMONARY HYPERTENSION
     Dosage: 10 MG, QD
     Route: 048
     Dates: start: 20170428
  20. SAMSCA [Concomitant]
     Active Substance: TOLVAPTAN

REACTIONS (2)
  - Cholecystectomy [Unknown]
  - Jaundice cholestatic [Recovered/Resolved]

NARRATIVE: CASE EVENT DATE: 201710
